FAERS Safety Report 16086721 (Version 1)
Quarter: 2019Q1

REPORT INFORMATION
  Report Type: Report from Study
  Country: EG (occurrence: EG)
  Receive Date: 20190318
  Receipt Date: 20190318
  Transmission Date: 20190418
  Serious: Yes (Other)
  Sender: FDA-Public Use
  Company Number: PHHY2019EG043997

PATIENT
  Age: 72 Year
  Sex: Female

DRUGS (9)
  1. ATACAND [Concomitant]
     Active Substance: CANDESARTAN CILEXETIL
     Indication: HYPERTENSION
     Dosage: 16 OT, QD (IN MORNING)
     Route: 065
  2. ATACAND PLUS [Suspect]
     Active Substance: CANDESARTAN CILEXETIL\HYDROCHLOROTHIAZIDE
     Indication: OEDEMA PERIPHERAL
     Dosage: UNK
     Route: 065
     Dates: end: 201901
  3. AFINITOR [Suspect]
     Active Substance: EVEROLIMUS
     Indication: BREAST CANCER
     Dosage: 10 MG, QD
     Route: 048
     Dates: start: 20181022
  4. AROMASIN [Concomitant]
     Active Substance: EXEMESTANE
     Indication: PRODUCT USED FOR UNKNOWN INDICATION
     Dosage: 25 MG, QD
     Route: 065
  5. NEBILET [Concomitant]
     Active Substance: NEBIVOLOL
     Indication: HYPERTENSION
     Dosage: 5 MG, QD (IN EVENING)
     Route: 065
  6. AFINITOR [Suspect]
     Active Substance: EVEROLIMUS
     Indication: METASTASES TO BONE
  7. SPASCOLON [Concomitant]
     Indication: PRODUCT USED FOR UNKNOWN INDICATION
     Dosage: 100 MG, BID
     Route: 065
  8. AFINITOR [Suspect]
     Active Substance: EVEROLIMUS
     Indication: METASTASES TO LUNG
     Dosage: 10MG DAY AND 5MG ANOTHER DAY
     Route: 048
     Dates: start: 201902
  9. DIAMICRON MR [Concomitant]
     Active Substance: GLICLAZIDE
     Indication: PRODUCT USED FOR UNKNOWN INDICATION
     Dosage: 60 OT, UNK
     Route: 065

REACTIONS (19)
  - Blood creatinine increased [Recovering/Resolving]
  - Dry skin [Recovered/Resolved]
  - Concomitant disease aggravated [Not Recovered/Not Resolved]
  - Blood glucose increased [Recovering/Resolving]
  - Swelling face [Not Recovered/Not Resolved]
  - Ageusia [Not Recovered/Not Resolved]
  - Conjunctival hyperaemia [Recovered/Resolved]
  - Eye swelling [Recovered/Resolved]
  - Generalised oedema [Not Recovered/Not Resolved]
  - Insomnia [Not Recovered/Not Resolved]
  - Gastric pH decreased [Not Recovered/Not Resolved]
  - Thrombosis [Not Recovered/Not Resolved]
  - Epistaxis [Not Recovered/Not Resolved]
  - Headache [Not Recovered/Not Resolved]
  - Anaemia [Not Recovered/Not Resolved]
  - Dyspnoea [Not Recovered/Not Resolved]
  - Abdominal pain upper [Not Recovered/Not Resolved]
  - Proteinuria [Recovering/Resolving]
  - Blood pressure increased [Recovering/Resolving]

NARRATIVE: CASE EVENT DATE: 20181022
